FAERS Safety Report 7503782-5 (Version None)
Quarter: 2011Q1

REPORT INFORMATION
  Report Type: 
  Country: None (occurrence: None)
  Receive Date: 20110331
  Receipt Date: 20100122
  Transmission Date: 20110831
  Serious: No
  Sender: FDA-Public Use
  Company Number: 488771

PATIENT
  Age: 46 Year
  Sex: Female

DRUGS (1)
  1. HEPARIN SODIUM [Suspect]
     Indication: PRODUCT USED FOR UNKNOWN INDICATION
     Dosage: 768ML/HOUR 100 UNITS/ML
     Route: 042
     Dates: start: 20100120, end: 20100120

REACTIONS (1)
  - MEDICATION ERROR [None]
